FAERS Safety Report 23723656 (Version 1)
Quarter: 2024Q2

REPORT INFORMATION
  Report Type: Spontaneous
  Country: FR (occurrence: FR)
  Receive Date: 20240409
  Receipt Date: 20240409
  Transmission Date: 20240716
  Serious: Yes (Death)
  Sender: FDA-Public Use
  Company Number: None

PATIENT
  Age: 16 Year
  Sex: Female

DRUGS (3)
  1. MORPHINE SULFATE [Suspect]
     Active Substance: MORPHINE SULFATE
     Indication: Drug abuse
     Dosage: LARGE QUANTITIES, SINGLE DOSE
     Route: 048
     Dates: start: 20220121
  2. TRAMADOL HYDROCHLORIDE [Suspect]
     Active Substance: TRAMADOL HYDROCHLORIDE
     Indication: Drug abuse
     Dosage: LARGE QUANTITIES, SINGLE DOSE
     Route: 048
     Dates: start: 20220121
  3. CODEINE [Suspect]
     Active Substance: CODEINE
     Indication: Drug abuse
     Dosage: LARGE QUANTITIES, SINGLE DOSE
     Route: 048
     Dates: start: 20220121

REACTIONS (1)
  - Coma [Fatal]

NARRATIVE: CASE EVENT DATE: 20220121
